FAERS Safety Report 6396226-0 (Version None)
Quarter: 2009Q4

REPORT INFORMATION
  Report Type: 
  Country: None (occurrence: None)
  Receive Date: 20091012
  Receipt Date: 20070614
  Transmission Date: 20100525
  Serious: Yes (Disabling, Other)
  Sender: FDA-Public Use
  Company Number: US-ASTRAZENECA-2006UW27563

PATIENT
  Age: 39 Year
  Sex: Female
  Weight: 125 kg

DRUGS (18)
  1. SEROQUEL [Suspect]
     Indication: BIPOLAR DISORDER
     Dosage: 300 TO 400 MG
     Route: 048
     Dates: start: 20030101, end: 20050101
  2. SEROQUEL [Suspect]
     Indication: BIPOLAR I DISORDER
     Dosage: 300 TO 400 MG
     Route: 048
     Dates: start: 20030101, end: 20050101
  3. SEROQUEL [Suspect]
     Dosage: 200 MG-600 MG DAILY
     Route: 048
     Dates: start: 20050906
  4. SEROQUEL [Suspect]
     Dosage: 200 MG-600 MG DAILY
     Route: 048
     Dates: start: 20050906
  5. ABILIFY [Concomitant]
  6. ZYPREXA [Concomitant]
  7. ZYPREXA [Concomitant]
     Dosage: 10 MG-50 MG AT NIGHT
     Route: 048
     Dates: start: 20020404
  8. LEXAPRO [Concomitant]
  9. TRAZODONE [Concomitant]
     Indication: SLEEP DISORDER
  10. TRAZODONE [Concomitant]
     Dates: start: 20051128
  11. METOPROLOL [Concomitant]
     Dates: start: 20050906
  12. XANAX [Concomitant]
     Dosage: 1.5 MG-10 MG AT NIGHT AS REQUIRED
     Dates: start: 20030313
  13. CYMBALTA [Concomitant]
     Dates: start: 20050906
  14. HYDROCHLOROTHIAZIDE [Concomitant]
     Dates: start: 20050906
  15. LIPITOR [Concomitant]
     Dates: start: 20050906
  16. SYNTHROID [Concomitant]
     Indication: HYPOTHYROIDISM
     Dosage: 0.1 MG-100 MG DAILY
     Dates: start: 19930107
  17. PAXIL [Concomitant]
     Dosage: 20 MG-30 MG AT NIGHT
     Route: 048
     Dates: start: 20020404
  18. KLONOPIN [Concomitant]
     Route: 048
     Dates: start: 20020404

REACTIONS (7)
  - BRAIN NEOPLASM [None]
  - DIABETES MELLITUS [None]
  - INCONTINENCE [None]
  - INSOMNIA [None]
  - PANIC ATTACK [None]
  - THYROID DISORDER [None]
  - TYPE 2 DIABETES MELLITUS [None]
